FAERS Safety Report 11051463 (Version 1)
Quarter: 2015Q2

REPORT INFORMATION
  Report Type: Spontaneous
  Country: US (occurrence: None)
  Receive Date: 20150420
  Receipt Date: 20150420
  Transmission Date: 20150821
  Serious: Yes (Other)
  Sender: FDA-Public Use
  Company Number: None

PATIENT
  Age: 55 Year
  Sex: Female

DRUGS (1)
  1. HUMIRA [Suspect]
     Active Substance: ADALIMUMAB

REACTIONS (4)
  - Syringe issue [None]
  - Device issue [None]
  - Device malfunction [None]
  - Condition aggravated [None]

NARRATIVE: CASE EVENT DATE: 20150417
